FAERS Safety Report 5722214-0 (Version None)
Quarter: 2008Q2

REPORT INFORMATION
  Report Type: 
  Country: None (occurrence: None)
  Receive Date: 20080429
  Receipt Date: 20080416
  Transmission Date: 20081010
  Serious: Yes (Hospitalization)
  Sender: FDA-Public Use
  Company Number: US-ELI_LILLY_AND_COMPANY-US200804004419

PATIENT
  Sex: Female

DRUGS (4)
  1. FORTEO [Suspect]
     Indication: OSTEOPOROSIS
     Dates: start: 20071113, end: 20080227
  2. NEXIUM [Concomitant]
  3. LIPITOR [Concomitant]
     Dosage: 10 MG, UNK
     Dates: end: 20080101
  4. CALCIUM [Concomitant]
     Dates: end: 20080101

REACTIONS (3)
  - CHEST DISCOMFORT [None]
  - CHEST PAIN [None]
  - THROAT IRRITATION [None]
